FAERS Safety Report 8889897 (Version 1)
Quarter: 2012Q4

REPORT INFORMATION
  Report Type: Spontaneous
  Country: GB (occurrence: None)
  Receive Date: 20121031
  Receipt Date: 20121031
  Transmission Date: 20130627
  Serious: Yes (Other)
  Sender: FDA-Public Use
  Company Number: 2012AP003482

PATIENT
  Age: 63 Year
  Sex: Male

DRUGS (2)
  1. PERINDOPRIL [Suspect]
     Indication: HYPERTENSION
     Route: 048
     Dates: start: 1992
  2. OMEPRAZOLE [Suspect]
     Route: 048
     Dates: start: 1997

REACTIONS (3)
  - Hypocalcaemia [None]
  - Drug ineffective [None]
  - Hypovitaminosis [None]
